FAERS Safety Report 7531117-0 (Version None)
Quarter: 2011Q2

REPORT INFORMATION
  Report Type: 
  Country: None (occurrence: None)
  Receive Date: 20110608
  Receipt Date: 20110608
  Transmission Date: 20111010
  Serious: No
  Sender: FDA-Public Use
  Company Number: US-JNJFOC-20110411257

PATIENT
  Sex: Male
  Weight: 108.86 kg

DRUGS (3)
  1. FENTANYL CITRATE [Suspect]
     Indication: BACK PAIN
     Route: 062
     Dates: start: 20110401
  2. MANY OTHER UNSPECIFIED MEDICATIONS [Concomitant]
  3. DILAUDID [Suspect]
     Indication: BREAKTHROUGH PAIN
     Route: 048
     Dates: start: 20110401, end: 20110401

REACTIONS (7)
  - RASH [None]
  - DRUG ADMINISTERED AT INAPPROPRIATE SITE [None]
  - EUPHORIC MOOD [None]
  - PRODUCT ADHESION ISSUE [None]
  - FEELING ABNORMAL [None]
  - NAUSEA [None]
  - WRONG TECHNIQUE IN DRUG USAGE PROCESS [None]
